FAERS Safety Report 7518945-2 (Version None)
Quarter: 2011Q2

REPORT INFORMATION
  Report Type: 
  Country: None (occurrence: None)
  Receive Date: 20110512
  Receipt Date: 20110314
  Transmission Date: 20111010
  Serious: No
  Sender: FDA-Public Use
  Company Number: 1000019242

PATIENT
  Age: 46 Year
  Sex: Female

DRUGS (9)
  1. SAVELLA [Suspect]
     Indication: FIBROMYALGIA
     Dosage: 12.5 MG (12.5 MG, 1 IN 1 D), ORAL
     Route: 048
     Dates: start: 20110311
  2. AVAPRO (IRBESARTAN) (IRBESARTAN) [Concomitant]
  3. METFORMIN HCL [Concomitant]
  4. KLOR-CON (POTASSIUM CHLORIDE) (POTASSIUM CHLORIDE) [Concomitant]
  5. HYDROCHLOROT (HYDROCHLOROTHIAZIDE) (HYDROCHLOROTHIAZIDE) [Concomitant]
  6. VITAMIN D (VITAMIN D) (VITAMIN D) [Concomitant]
  7. DILTIAZEM (DILTIAZEM HYDROCHLORIDE) (DILTIAZEM HYDROCHLORIDE) [Concomitant]
  8. AMBIEN [Concomitant]
  9. ONGLYZA (SAXAGLIPTIN) (SAXAGLIPTIN) [Concomitant]

REACTIONS (1)
  - INSOMNIA [None]
